FAERS Safety Report 24630974 (Version 1)
Quarter: 2024Q4

REPORT INFORMATION
  Report Type: Spontaneous
  Country: US (occurrence: None)
  Receive Date: 20241116
  Receipt Date: 20241116
  Transmission Date: 20250115
  Serious: Yes (Hospitalization)
  Sender: Public
  Company Number: None

PATIENT
  Age: 70 Year
  Sex: Male
  Weight: 86.2 kg

DRUGS (2)
  1. TREMELIMUMAB [Suspect]
     Active Substance: TREMELIMUMAB
     Indication: Mesothelioma
  2. DURVALUMAB [Suspect]
     Active Substance: DURVALUMAB
     Indication: Mesothelioma

REACTIONS (4)
  - Mediastinal mass [None]
  - Pleural effusion [None]
  - Atelectasis [None]
  - Atelectasis [None]

NARRATIVE: CASE EVENT DATE: 20241111
